FAERS Safety Report 9265315 (Version 6)
Quarter: 2014Q3

REPORT INFORMATION
  Report Type: Spontaneous
  Country: US (occurrence: US)
  Receive Date: 20130501
  Receipt Date: 20140813
  Transmission Date: 20150326
  Serious: Yes (Other)
  Sender: FDA-Public Use
  Company Number: US-PFIZER INC-2013132786

PATIENT
  Age: 24 Year
  Sex: Female

DRUGS (2)
  1. LIPITOR [Suspect]
     Active Substance: ATORVASTATIN CALCIUM
     Dosage: 20 MG, 1X/DAY (ONE TABLET BY MOUTH EVERY DAY)
     Route: 048
     Dates: start: 20110519
  2. LIPITOR [Suspect]
     Active Substance: ATORVASTATIN CALCIUM
     Dosage: UNK
     Route: 048
     Dates: start: 2002, end: 201309

REACTIONS (3)
  - Amnesia [Unknown]
  - Type 2 diabetes mellitus [Unknown]
  - Depression [Unknown]

NARRATIVE: CASE EVENT DATE: 20060608
